FAERS Safety Report 6382933-2 (Version None)
Quarter: 2009Q3

REPORT INFORMATION
  Report Type: 
  Country: None (occurrence: None)
  Receive Date: 20090930
  Receipt Date: 20090916
  Transmission Date: 20100115
  Serious: Yes (Other)
  Sender: FDA-Public Use
  Company Number: US-PFIZER INC-2009269935

PATIENT
  Sex: Female

DRUGS (5)
  1. SUTENT [Suspect]
     Dosage: UNK
     Dates: start: 20090801
  2. WARFARIN [Suspect]
  3. KEPPRA [Concomitant]
     Dosage: UNK
     Dates: start: 20090701
  4. PRILOSEC [Concomitant]
     Dosage: UNK
     Dates: start: 20090701
  5. DECADRON [Concomitant]
     Dosage: UNK
     Dates: start: 20090701

REACTIONS (1)
  - PETECHIAE [None]
